FAERS Safety Report 13284404 (Version 1)
Quarter: 2017Q1

REPORT INFORMATION
  Report Type: Spontaneous
  Country: US (occurrence: US)
  Receive Date: 20170301
  Receipt Date: 20170301
  Transmission Date: 20170428
  Serious: No
  Sender: FDA-Public Use
  Company Number: US-BRAEBURN PHARMACEUTICALS, INC.-2016BBN00004

PATIENT
  Age: 57 Year
  Sex: Male
  Weight: 68.27 kg

DRUGS (6)
  1. PROBUPHINE [Suspect]
     Active Substance: BUPRENORPHINE HYDROCHLORIDE
     Indication: DRUG DEPENDENCE
     Dosage: 74.2 MG, 4 IMPLANTS, UNK
     Dates: start: 20160613
  2. UNSPECIFIED HEART MAINTENANCE MEDICATIONS [Concomitant]
     Active Substance: UNSPECIFIED INGREDIENT
  3. OXYCODONE [Suspect]
     Active Substance: OXYCODONE
     Dosage: UNK
  4. OXYCODONE [Suspect]
     Active Substance: OXYCODONE
     Dosage: 300 MG, 1X/DAY
     Dates: end: 20160613
  5. MORPHINE [Suspect]
     Active Substance: MORPHINE
     Dosage: 300 MG, 1X/DAY
     Dates: end: 20160613
  6. MORPHINE [Suspect]
     Active Substance: MORPHINE
     Dosage: UNK

REACTIONS (3)
  - Intervertebral disc disorder [Unknown]
  - Gait disturbance [Not Recovered/Not Resolved]
  - Hypoaesthesia [Not Recovered/Not Resolved]

NARRATIVE: CASE EVENT DATE: 201606
